FAERS Safety Report 4299544-5 (Version None)
Quarter: 2004Q1

REPORT INFORMATION
  Report Type: 
  Country: None (occurrence: None)
  Receive Date: 20040217
  Receipt Date: 20040203
  Transmission Date: 20041129
  Serious: Yes (Other)
  Sender: FDA-Public Use
  Company Number: 2004007036

PATIENT
  Age: 68 Year
  Sex: Female

DRUGS (1)
  1. UNICAP SR (MULTIVITAMINS, MINERALS) [Suspect]
     Indication: VITAMIN SUPPLEMENTATION
     Dosage: 1 TAB ONCE DAILY, ORAL
     Route: 048
     Dates: start: 19760101

REACTIONS (1)
  - CORONARY ARTERY SURGERY [None]
